FAERS Safety Report 22389268 (Version 4)
Quarter: 2024Q1

REPORT INFORMATION
  Report Type: Spontaneous
  Country: US (occurrence: US)
  Receive Date: 20230531
  Receipt Date: 20240116
  Transmission Date: 20240410
  Serious: Yes (Hospitalization, Other)
  Sender: FDA-Public Use
  Company Number: US-PFIZER INC-US-GBT-020385

PATIENT
  Age: 9 Year
  Sex: Female
  Weight: 22.8 kg

DRUGS (5)
  1. OXBRYTA [Suspect]
     Active Substance: VOXELOTOR
     Indication: Sickle cell disease
     Dosage: 300 MG, DAILY
     Route: 048
     Dates: start: 20221006
  2. OXBRYTA [Suspect]
     Active Substance: VOXELOTOR
     Indication: Anaemia
     Dosage: 900 MG, 1X/DAY
     Route: 048
     Dates: start: 20221007
  3. OXBRYTA [Suspect]
     Active Substance: VOXELOTOR
     Dosage: 300 MG TABLETS FOR ORAL SUSPENSION, 3 TABLETS ONCE DAILY
     Route: 048
     Dates: start: 202210
  4. OXBRYTA [Suspect]
     Active Substance: VOXELOTOR
     Dosage: 300 MG, 1X/DAY (3 TABLETS FOR ORAL SUSPENSION BY MOUTH ONCE DAILY)
     Route: 048
  5. HYDROXYUREA [Concomitant]
     Active Substance: HYDROXYUREA
     Indication: Sickle cell disease
     Dosage: 500 MG, DAILY (DURATION OF TREATMENT: LIFELONG)
     Dates: start: 2015

REACTIONS (12)
  - Sickle cell anaemia with crisis [Recovered/Resolved]
  - Sickle cell anaemia with crisis [Recovered/Resolved]
  - Sickle cell anaemia with crisis [Recovered/Resolved]
  - Sickle cell anaemia with crisis [Unknown]
  - Nausea [Unknown]
  - Inflammation [Unknown]
  - Pain [Unknown]
  - Cough [Unknown]
  - Headache [Unknown]
  - Back pain [Unknown]
  - Pyrexia [Unknown]
  - Pain in extremity [Unknown]

NARRATIVE: CASE EVENT DATE: 20221101
